FAERS Safety Report 9843406 (Version 1)
Quarter: 2013Q4

REPORT INFORMATION
  Report Type: Spontaneous
  Country: US (occurrence: None)
  Receive Date: 20131223
  Receipt Date: 20131223
  Transmission Date: 20140711
  Serious: No
  Sender: FDA-Public Use
  Company Number: 220148LEO

PATIENT
  Sex: Male

DRUGS (5)
  1. PICATO (0.015%, GEL) [Suspect]
     Indication: ACTINIC KERATOSIS
     Dosage: 1 IN 1 D DERMAL
     Dates: start: 20130114
  2. COUMADIN(WARFARIN SODIUM) [Concomitant]
  3. FINASTERIDE (FINASTERIDE) [Concomitant]
  4. TAMSULOSIN (TAMSULOSIN) [Concomitant]
  5. SIMVASTATIN (SIMVASTATIN) [Concomitant]

REACTIONS (3)
  - Burning sensation mucosal [None]
  - Accidental exposure to product [None]
  - Drug administered at inappropriate site [None]
